FAERS Safety Report 8836896 (Version 3)
Quarter: 2012Q4

REPORT INFORMATION
  Report Type: Spontaneous
  Country: CA (occurrence: None)
  Receive Date: 20121010
  Receipt Date: 20121102
  Transmission Date: 20130627
  Serious: Yes (Other)
  Sender: FDA-Public Use
  Company Number: CA-1194438

PATIENT
  Age: 74 Year
  Sex: Male

DRUGS (1)
  1. TRAVATAN Z [Suspect]
     Indication: GLAUCOMA
     Route: 047
     Dates: start: 201109

REACTIONS (2)
  - Diplopia [None]
  - Vision blurred [None]
